FAERS Safety Report 7419339-0 (Version None)
Quarter: 2011Q2

REPORT INFORMATION
  Report Type: 
  Country: None (occurrence: None)
  Receive Date: 20110415
  Receipt Date: 20110414
  Transmission Date: 20111010
  Serious: Yes (Other)
  Sender: FDA-Public Use
  Company Number: JP-ABBOTT-11P-087-0719188-00

PATIENT
  Sex: Male

DRUGS (3)
  1. KLARICID DRY SYRUP [Suspect]
     Indication: BRONCHITIS
     Route: 048
     Dates: start: 20110412
  2. MONTELUKAST SODIUM [Concomitant]
     Indication: ASTHMA
     Route: 048
     Dates: start: 20091207
  3. COMBINATION DRUG(UNKNOWN PRODUCT) [Concomitant]
     Indication: BRONCHITIS
     Route: 048
     Dates: start: 20110411

REACTIONS (3)
  - ASTHENIA [None]
  - HEART RATE INCREASED [None]
  - FATIGUE [None]
